FAERS Safety Report 6200366-6 (Version None)
Quarter: 2009Q2

REPORT INFORMATION
  Report Type: 
  Country: None (occurrence: None)
  Receive Date: 20090522
  Receipt Date: 20090513
  Transmission Date: 20091009
  Serious: Yes (Death)
  Sender: FDA-Public Use
  Company Number: US-PFIZER INC-2009215936

PATIENT
  Sex: Male

DRUGS (1)
  1. XANAX [Suspect]
     Indication: PANIC DISORDER
     Dates: start: 20000101

REACTIONS (1)
  - DEATH [None]
